FAERS Safety Report 4318216-1 (Version None)
Quarter: 2004Q1

REPORT INFORMATION
  Report Type: 
  Country: None (occurrence: None)
  Receive Date: 20040315
  Receipt Date: 20040304
  Transmission Date: 20041129
  Serious: Yes (Hospitalization, Other)
  Sender: FDA-Public Use
  Company Number: FRWYE621604MAR04

PATIENT
  Age: 40 Year
  Sex: Male

DRUGS (4)
  1. OXAZEPAM [Suspect]
     Route: 048
     Dates: start: 20031021, end: 20031021
  2. DEPAKOTE [Suspect]
     Indication: BIPOLAR I DISORDER
     Route: 048
     Dates: start: 20031021, end: 20031021
  3. CLONAZEPAM [Suspect]
     Indication: BIPOLAR I DISORDER
     Route: 048
     Dates: start: 20031021, end: 20031021
  4. ZYPREXA [Concomitant]

REACTIONS (6)
  - INTENTIONAL OVERDOSE [None]
  - INTENTIONAL SELF-INJURY [None]
  - LACERATION [None]
  - PLATELET COUNT INCREASED [None]
  - SUICIDE ATTEMPT [None]
  - THROMBOCYTOPENIA [None]
